FAERS Safety Report 18651563 (Version 2)
Quarter: 2020Q4

REPORT INFORMATION
  Report Type: Spontaneous
  Country: US (occurrence: US)
  Receive Date: 20201222
  Receipt Date: 20201224
  Transmission Date: 20210114
  Serious: No
  Sender: FDA-Public Use
  Company Number: US-BAYER-2020-283929

PATIENT
  Sex: Male

DRUGS (1)
  1. VITRAKVI [Suspect]
     Active Substance: LAROTRECTINIB
     Indication: NEUROENDOCRINE CARCINOMA
     Dosage: UNK
     Route: 048
     Dates: start: 201905

REACTIONS (7)
  - Peripheral swelling [None]
  - Myalgia [None]
  - Dizziness [None]
  - Arthralgia [None]
  - Fatigue [None]
  - Joint swelling [None]
  - Weight increased [None]
